FAERS Safety Report 15095798 (Version 1)
Quarter: 2018Q3

REPORT INFORMATION
  Report Type: Spontaneous
  Country: US (occurrence: US)
  Receive Date: 20180702
  Receipt Date: 20180702
  Transmission Date: 20181010
  Serious: Yes (Hospitalization, Other)
  Sender: FDA-Public Use
  Company Number: US-INGENUS PHARMACEUTICALS NJ, LLC-ING201806-000640

PATIENT
  Age: 26 Week
  Sex: Female

DRUGS (2)
  1. CARISOPRODOL, ASPIRIN AND CODEINE PHOSPHATE [Suspect]
     Active Substance: ASPIRIN\CARISOPRODOL\CODEINE PHOSPHATE
  2. ACETAMINOPHEN. [Suspect]
     Active Substance: ACETAMINOPHEN

REACTIONS (5)
  - Arterial injury [Recovering/Resolving]
  - Metabolic acidosis [Recovered/Resolved]
  - Overdose [Recovering/Resolving]
  - Foetal exposure during pregnancy [Unknown]
  - Drug level increased [Unknown]
